FAERS Safety Report 14505671 (Version 1)
Quarter: 2018Q1

REPORT INFORMATION
  Report Type: Spontaneous
  Country: US (occurrence: US)
  Receive Date: 20180207
  Receipt Date: 20180207
  Transmission Date: 20180509
  Serious: Yes (Other)
  Sender: FDA-Public Use
  Company Number: None

PATIENT

DRUGS (1)
  1. OXYCODONE AND ACETAMINOPHEN [Suspect]
     Active Substance: ACETAMINOPHEN\OXYCODONE HYDROCHLORIDE

REACTIONS (6)
  - Respiratory failure [None]
  - Depressed level of consciousness [None]
  - Alanine aminotransferase increased [None]
  - Mental status changes [None]
  - Aspartate aminotransferase increased [None]
  - Drug level increased [None]
